FAERS Safety Report 10102024 (Version 3)
Quarter: 2014Q2

REPORT INFORMATION
  Report Type: Spontaneous
  Country: JP (occurrence: JP)
  Receive Date: 20140424
  Receipt Date: 20140509
  Transmission Date: 20141212
  Serious: Yes (Other)
  Sender: FDA-Public Use
  Company Number: JP-ASTELLAS-2014JP002274

PATIENT
  Age: 25 Year
  Sex: Female
  Weight: 44 kg

DRUGS (12)
  1. PROGRAF [Suspect]
     Indication: PROPHYLAXIS AGAINST GRAFT VERSUS HOST DISEASE
     Route: 041
     Dates: start: 20130424
  2. PROGRAF [Suspect]
     Indication: PROPHYLAXIS AGAINST GRAFT VERSUS HOST DISEASE
     Route: 048
     Dates: end: 20130917
  3. METHOTREXATE [Suspect]
     Indication: PROPHYLAXIS AGAINST GRAFT VERSUS HOST DISEASE
     Route: 041
     Dates: start: 20130427
  4. METHOTREXATE [Suspect]
     Route: 041
     Dates: start: 20130429
  5. METHOTREXATE [Suspect]
     Route: 041
     Dates: start: 20130502
  6. CELLCEPT                           /01275102/ [Suspect]
     Indication: PROPHYLAXIS AGAINST GRAFT VERSUS HOST DISEASE
     Dosage: 45 MG/KG, ONCE DAILY
     Route: 048
     Dates: start: 20130426, end: 20130531
  7. FLUDARA [Suspect]
     Indication: PREMEDICATION
     Route: 065
  8. BUSULFAN [Suspect]
     Indication: PREMEDICATION
     Route: 065
  9. ANTITHYMOCYTE IMMUNOGLOBULIN [Suspect]
     Indication: PREMEDICATION
     Route: 065
  10. VIDAZA [Concomitant]
     Indication: MYELODYSPLASTIC SYNDROME
     Route: 065
  11. VIDAZA [Concomitant]
     Route: 065
  12. ENDOXAN                            /00021101/ [Concomitant]
     Indication: PRODUCT USED FOR UNKNOWN INDICATION
     Route: 041
     Dates: start: 20130428, end: 20130429

REACTIONS (3)
  - Secondary immunodeficiency [Recovering/Resolving]
  - Cytomegalovirus viraemia [Recovered/Resolved]
  - Viral haemorrhagic cystitis [Recovered/Resolved]
